FAERS Safety Report 12855501 (Version 2)
Quarter: 2016Q4

REPORT INFORMATION
  Report Type: Spontaneous
  Country: US (occurrence: US)
  Receive Date: 20161017
  Receipt Date: 20161201
  Transmission Date: 20170207
  Serious: No
  Sender: FDA-Public Use
  Company Number: US-ASTRAZENECA-2016SF00934

PATIENT
  Sex: Female
  Weight: 80.3 kg

DRUGS (4)
  1. LISINOPRIL. [Suspect]
     Active Substance: LISINOPRIL
     Indication: HYPERTENSION
     Route: 048
     Dates: start: 2006
  2. METFORMIN HYDROCHLORIDE. [Concomitant]
     Active Substance: METFORMIN HYDROCHLORIDE
     Indication: TYPE 2 DIABETES MELLITUS
     Route: 048
     Dates: start: 201601
  3. BYDUREON [Suspect]
     Active Substance: EXENATIDE
     Indication: TYPE 2 DIABETES MELLITUS
     Route: 058
     Dates: start: 201607
  4. SIMVASTATIN. [Concomitant]
     Active Substance: SIMVASTATIN
     Indication: BLOOD CHOLESTEROL INCREASED
     Route: 048
     Dates: start: 2006

REACTIONS (11)
  - Abdominal pain upper [Recovered/Resolved]
  - Diarrhoea [Unknown]
  - Injection site pruritus [Unknown]
  - Weight decreased [Unknown]
  - Injection site extravasation [Unknown]
  - Off label use of device [Unknown]
  - Nervousness [Recovering/Resolving]
  - Drug dose omission [Unknown]
  - Nausea [Recovered/Resolved]
  - Injection site mass [Unknown]
  - Device malfunction [Unknown]

NARRATIVE: CASE EVENT DATE: 2006
